FAERS Safety Report 6569924-3 (Version None)
Quarter: 2010Q1

REPORT INFORMATION
  Report Type: 
  Country: None (occurrence: None)
  Receive Date: 20100202
  Receipt Date: 20100202
  Transmission Date: 20100710
  Serious: Yes (Hospitalization, Other)
  Sender: FDA-Public Use
  Company Number: None

PATIENT
  Sex: Male
  Weight: 21.5 kg

DRUGS (2)
  1. VANCOMYCIN [Suspect]
     Indication: BRAIN ABSCESS
     Dosage: 360 MG Q8H IV
     Route: 042
     Dates: start: 20091218, end: 20100111
  2. VANCOMYCIN [Suspect]
     Indication: MASTOIDITIS
     Dosage: 360 MG Q8H IV
     Route: 042
     Dates: start: 20091218, end: 20100111

REACTIONS (1)
  - DRUG RASH WITH EOSINOPHILIA AND SYSTEMIC SYMPTOMS [None]
